FAERS Safety Report 23961947 (Version 1)
Quarter: 2024Q2

REPORT INFORMATION
  Report Type: Spontaneous
  Country: US (occurrence: None)
  Receive Date: 20240610
  Receipt Date: 20240610
  Transmission Date: 20240716
  Serious: Yes (Hospitalization)
  Sender: FDA-Public Use
  Company Number: None

PATIENT
  Sex: Female

DRUGS (1)
  1. TOBRAMYCIN [Suspect]
     Active Substance: TOBRAMYCIN\TOBRAMYCIN SULFATE
     Dosage: OTHER QUANTITY : 1 AMPULE;?FREQUENCY : DAILY;?OTHER ROUTE : NEBULIZER;?
     Route: 050

REACTIONS (1)
  - Surgery [None]
